FAERS Safety Report 13930471 (Version 1)
Quarter: 2017Q3

REPORT INFORMATION
  Report Type: Spontaneous
  Country: US (occurrence: DE)
  Receive Date: 20170901
  Receipt Date: 20170901
  Transmission Date: 20171127
  Serious: Yes (Other)
  Sender: FDA-Public Use
  Company Number: GXKR2017DE004311

PATIENT
  Age: 53 Year
  Sex: Male
  Weight: 85 kg

DRUGS (1)
  1. LOPERAMIDE [Suspect]
     Active Substance: LOPERAMIDE
     Indication: SHORT-BOWEL SYNDROME
     Dosage: 2 DF, QD
     Route: 048
     Dates: start: 2008

REACTIONS (4)
  - Intestinal atresia [Unknown]
  - Muscle strain [Unknown]
  - Fatigue [Unknown]
  - Musculoskeletal stiffness [Unknown]
